FAERS Safety Report 9518221 (Version 4)
Quarter: 2014Q1

REPORT INFORMATION
  Report Type: Report from Study
  Country: JP (occurrence: JP)
  Receive Date: 20130912
  Receipt Date: 20140121
  Transmission Date: 20141002
  Serious: Yes (Death, Hospitalization, Other)
  Sender: FDA-Public Use
  Company Number: JP-JNJFOC-20130903305

PATIENT
  Age: 98 Year
  Sex: Female
  Weight: 32 kg

DRUGS (12)
  1. REMINYL [Suspect]
     Indication: DEMENTIA ALZHEIMER^S TYPE
     Route: 048
     Dates: start: 20120315, end: 20130424
  2. REMINYL [Suspect]
     Indication: DEMENTIA ALZHEIMER^S TYPE
     Route: 048
     Dates: start: 20120216, end: 20120314
  3. CAPTORIL R [Concomitant]
     Indication: HYPERTENSION
     Route: 048
  4. LENDORMIN [Concomitant]
     Indication: INSOMNIA
     Route: 048
  5. TAKEPRON [Concomitant]
     Indication: GASTROOESOPHAGEAL REFLUX DISEASE
     Route: 048
  6. NORVASC [Concomitant]
     Indication: HYPERTENSION
     Route: 048
  7. SELBEX [Concomitant]
     Indication: GASTRITIS
     Route: 048
  8. SELARA (EPLERENONE) [Concomitant]
     Indication: HYPERTENSION
     Route: 048
     Dates: start: 20120607
  9. LULLAN [Concomitant]
     Indication: INSOMNIA
     Route: 048
     Dates: start: 20120927
  10. LASIX [Concomitant]
     Indication: HYPERTENSION
     Route: 048
     Dates: start: 20130314
  11. TAMIFLU [Concomitant]
     Indication: INFLUENZA
     Route: 048
     Dates: start: 20130207, end: 20130211
  12. CALONAL [Concomitant]
     Indication: INFLUENZA
     Route: 048
     Dates: start: 20130207, end: 20130211

REACTIONS (7)
  - Sick sinus syndrome [Fatal]
  - Cardiogenic shock [Fatal]
  - Myocardial infarction [Fatal]
  - Pneumonia [Fatal]
  - Influenza [Recovering/Resolving]
  - Oedema peripheral [Not Recovered/Not Resolved]
  - Insomnia [Recovering/Resolving]
